FAERS Safety Report 8190343-0 (Version None)
Quarter: 2012Q1

REPORT INFORMATION
  Report Type: 
  Country: None (occurrence: None)
  Receive Date: 20120307
  Receipt Date: 20120224
  Transmission Date: 20120608
  Serious: Yes (Other)
  Sender: FDA-Public Use
  Company Number: US-SANOFI-AVENTIS-2012SA012694

PATIENT
  Sex: Female

DRUGS (4)
  1. PLAVIX [Suspect]
     Route: 048
     Dates: start: 20110509
  2. GLIMEPIRIDE [Concomitant]
  3. METOPROLOL SUCCINATE [Concomitant]
  4. PRAVASTATIN [Concomitant]

REACTIONS (2)
  - SYNCOPE [None]
  - SKIN DISCOLOURATION [None]
